FAERS Safety Report 6123550-9 (Version None)
Quarter: 2009Q1

REPORT INFORMATION
  Report Type: 
  Country: None (occurrence: None)
  Receive Date: 20090318
  Receipt Date: 20090309
  Transmission Date: 20090719
  Serious: Yes (Death, Other)
  Sender: FDA-Public Use
  Company Number: US-BRISTOL-MYERS SQUIBB COMPANY-14544308

PATIENT
  Age: 48 Year
  Sex: Female

DRUGS (4)
  1. MITOMYCIN [Suspect]
     Dosage: INITIALLY RECEIVED INTRAPERITONEAL
     Route: 034
     Dates: start: 20060301
  2. DOXORUBICIN HCL [Suspect]
     Route: 034
     Dates: start: 20060301
  3. FLUOROURACIL [Suspect]
     Route: 042
     Dates: start: 20060301
  4. LEUCOVORIN CALCIUM [Suspect]
     Route: 042
     Dates: start: 20060301

REACTIONS (3)
  - INTERSTITIAL LUNG DISEASE [None]
  - PULMONARY FIBROSIS [None]
  - SEPSIS [None]
